FAERS Safety Report 5955328-0 (Version None)
Quarter: 2008Q4

REPORT INFORMATION
  Report Type: 
  Country: None (occurrence: None)
  Receive Date: 20081117
  Receipt Date: 20081107
  Transmission Date: 20090506
  Serious: Yes (Other)
  Sender: FDA-Public Use
  Company Number: US-BAYER-200836656NA

PATIENT
  Age: 53 Year
  Sex: Male
  Weight: 70 kg

DRUGS (4)
  1. CAMPATH [Suspect]
     Indication: DRUG USE FOR UNKNOWN INDICATION
  2. PROCRIT [Suspect]
     Indication: ANAEMIA POSTOPERATIVE
  3. ARANESP [Suspect]
     Indication: ANAEMIA POSTOPERATIVE
  4. RAPAMUNE [Concomitant]

REACTIONS (3)
  - ANAEMIA [None]
  - ERYTHROID SERIES ABNORMAL [None]
  - RETICULOCYTE COUNT DECREASED [None]
